FAERS Safety Report 24198375 (Version 3)
Quarter: 2024Q3

REPORT INFORMATION
  Report Type: Report from Study
  Country: US (occurrence: US)
  Receive Date: 20240812
  Receipt Date: 20240904
  Transmission Date: 20241016
  Serious: Yes (Death, Hospitalization, Other)
  Sender: JOHNSON AND JOHNSON
  Company Number: US-JNJFOC-20240820434

PATIENT
  Age: 67 Year
  Sex: Male
  Weight: 79.45 kg

DRUGS (2)
  1. SPRAVATO [Suspect]
     Active Substance: ESKETAMINE
     Indication: Depression
     Dosage: 84 MG, 102 TOTAL DOSES, DRUG START DATE WAS CONFLICTINGLY REPORTED AS 24-OCT-2023.
     Dates: start: 20230320, end: 20240528
  2. SPRAVATO [Suspect]
     Active Substance: ESKETAMINE
     Indication: Major depression

REACTIONS (3)
  - Completed suicide [Fatal]
  - Suicide attempt [Unknown]
  - Tardive dyskinesia [Unknown]

NARRATIVE: CASE EVENT DATE: 20240509
